FAERS Safety Report 17412142 (Version 7)
Quarter: 2020Q4

REPORT INFORMATION
  Report Type: Spontaneous
  Country: JP (occurrence: JP)
  Receive Date: 20200213
  Receipt Date: 20201201
  Transmission Date: 20210113
  Serious: Yes (Hospitalization, Other)
  Sender: FDA-Public Use
  Company Number: JP-AMGEN-JPNSP2020022173

PATIENT
  Age: 61 Year
  Sex: Male
  Weight: 75.5 kg

DRUGS (22)
  1. EPOETIN ALFA [Concomitant]
     Active Substance: ERYTHROPOIETIN
     Dosage: 9000 DOSAGE FORM, QWK
     Route: 065
     Dates: start: 20190508
  2. FOSRENOL [Concomitant]
     Active Substance: LANTHANUM CARBONATE
     Dosage: 1500 MILLIGRAM, QD
     Route: 048
     Dates: start: 20200723
  3. P-TOL [SUCROFERRIC OXYHYDROXIDE] [Concomitant]
     Active Substance: SUCROFERRIC OXYHYDROXIDE
     Dosage: 3000 MILLIGRAM, QD
     Route: 048
     Dates: start: 20201027
  4. OXAROL MARUHO [Concomitant]
     Dosage: 10 MICROGRAM, Q56H
     Route: 065
     Dates: start: 20190516, end: 20190708
  5. OXAROL MARUHO [Concomitant]
     Dosage: 5 MICROGRAM, Q84H
     Route: 065
     Dates: start: 20200310, end: 20200515
  6. FOSRENOL [Concomitant]
     Active Substance: LANTHANUM CARBONATE
     Dosage: 1500 MILLIGRAM, QD
     Route: 048
     Dates: start: 20201027
  7. PARSABIV [Suspect]
     Active Substance: ETELCALCETIDE HYDROCHLORIDE
     Indication: HYPERPARATHYROIDISM SECONDARY
     Dosage: UNK
     Route: 065
  8. EPOETIN ALFA [Concomitant]
     Active Substance: ERYTHROPOIETIN
     Dosage: 1500 DOSAGE FORM, QWK
     Route: 065
     Dates: start: 20190511, end: 20190816
  9. EPOETIN ALFA [Concomitant]
     Active Substance: ERYTHROPOIETIN
     Dosage: 1500 DOSAGE FORM, QWK
     Route: 065
     Dates: start: 20191026, end: 20191203
  10. EPOETIN ALFA [Concomitant]
     Active Substance: ERYTHROPOIETIN
     Dosage: 2250 DOSAGE FORM, QWK
     Route: 065
     Dates: start: 20200411
  11. OXAROL MARUHO [Concomitant]
     Dosage: 130 MICROGRAM
  12. OXAROL MARUHO [Concomitant]
     Dosage: 5 MICROGRAM
     Route: 065
     Dates: end: 20190209
  13. P-TOL [SUCROFERRIC OXYHYDROXIDE] [Concomitant]
     Active Substance: SUCROFERRIC OXYHYDROXIDE
     Dosage: 3000 MILLIGRAM, QD
     Route: 048
     Dates: start: 20200723
  14. EPOETIN ALFA [Concomitant]
     Active Substance: ERYTHROPOIETIN
     Dosage: 750 DOSAGE FORM, QWK
     Route: 065
     Dates: start: 20191214, end: 20200409
  15. OXAROL MARUHO [Concomitant]
     Dosage: 5 MICROGRAM, Q84H
     Route: 065
     Dates: start: 20200516
  16. OXAROL MARUHO [Concomitant]
     Dosage: 5 MICROGRAM, Q56H
     Route: 065
     Dates: start: 20191112, end: 20200306
  17. OXAROL MARUHO [Concomitant]
     Dosage: 5 MICROGRAM, Q56H
     Route: 065
     Dates: start: 20190212, end: 20190411
  18. OXAROL MARUHO [Concomitant]
     Dosage: 10 MICROGRAM, Q48H
     Route: 065
     Dates: start: 20190413, end: 20190514
  19. OXAROL MARUHO [Concomitant]
     Dosage: 10 MICROGRAM, Q84H
     Route: 065
     Dates: start: 20190709, end: 20191111
  20. OXAROL MARUHO [Concomitant]
     Dosage: 2.5 MICROGRAM, QWK
     Route: 065
     Dates: start: 20200516
  21. FULSTAN [Concomitant]
     Dosage: UNK
     Route: 065
  22. EPOETIN ALFA [Concomitant]
     Active Substance: ERYTHROPOIETIN
     Dosage: 2250 DOSAGE FORM, QWK
     Route: 065
     Dates: start: 20190820, end: 20191023

REACTIONS (2)
  - Heat illness [Recovered/Resolved]
  - Shunt occlusion [Recovered/Resolved]

NARRATIVE: CASE EVENT DATE: 20190801
